FAERS Safety Report 12941344 (Version 2)
Quarter: 2017Q1

REPORT INFORMATION
  Report Type: Spontaneous
  Country: US (occurrence: US)
  Receive Date: 20161115
  Receipt Date: 20170201
  Transmission Date: 20170428
  Serious: Yes (Death)
  Sender: FDA-Public Use
  Company Number: US-INSYS THERAPEUTICS, INC-INS201611-000691

PATIENT
  Age: 57 Year
  Sex: Male

DRUGS (10)
  1. ZOFRAN [Concomitant]
     Active Substance: ONDANSETRON HYDROCHLORIDE
  2. MS CONTIN [Concomitant]
     Active Substance: MORPHINE SULFATE
  3. SUBSYS [Suspect]
     Active Substance: FENTANYL
     Indication: BREAKTHROUGH PAIN
     Route: 060
     Dates: start: 20160812, end: 20161101
  4. CELEXA [Concomitant]
     Active Substance: CITALOPRAM HYDROBROMIDE
  5. DEXAMETHASONE. [Concomitant]
     Active Substance: DEXAMETHASONE
  6. ALBUTEROL. [Concomitant]
     Active Substance: ALBUTEROL
  7. FENTANYL TRANSDERMAL SYSTEM [Concomitant]
     Active Substance: FENTANYL
  8. LORAZEPAM. [Concomitant]
     Active Substance: LORAZEPAM
  9. ASPIRIN. [Concomitant]
     Active Substance: ASPIRIN
  10. MORPHINE IR [Concomitant]
     Active Substance: MORPHINE

REACTIONS (1)
  - Neoplasm progression [Fatal]

NARRATIVE: CASE EVENT DATE: 20161101
